FAERS Safety Report 11322181 (Version 1)
Quarter: 2015Q3

REPORT INFORMATION
  Report Type: Spontaneous
  Country: DK (occurrence: DK)
  Receive Date: 20150729
  Receipt Date: 20150729
  Transmission Date: 20151125
  Serious: Yes (Other)
  Sender: FDA-Public Use
  Company Number: DK-ALLERGAN-1514272US

PATIENT
  Age: 11 Year
  Sex: Male
  Weight: 18 kg

DRUGS (2)
  1. PROPOFOL. [Concomitant]
     Active Substance: PROPOFOL
     Indication: GENERAL ANAESTHESIA
  2. BOTOX [Suspect]
     Active Substance: ONABOTULINUMTOXINA
     Indication: SCOLIOSIS
     Dosage: 15.8 UNITS/KG
     Route: 030

REACTIONS (3)
  - Drug ineffective [Unknown]
  - Osteotomy [Unknown]
  - Off label use [Unknown]
